FAERS Safety Report 9234200 (Version 1)
Quarter: 2013Q2

REPORT INFORMATION
  Report Type: Spontaneous
  Country: FR (occurrence: FR)
  Receive Date: 20130416
  Receipt Date: 20130416
  Transmission Date: 20140414
  Serious: Yes (Hospitalization)
  Sender: FDA-Public Use
  Company Number: FR-ASTRAZENECA-2013SE23229

PATIENT
  Age: 16506 Day
  Sex: Female

DRUGS (2)
  1. INEXIUM [Suspect]
     Route: 048
     Dates: start: 20130307, end: 20130314
  2. PIPERACILLINE TAZOBACTAM MYLAN [Suspect]
     Indication: PLEURISY
     Dosage: 4G/500MG PER DOSE, 3 DF EVERY DAY
     Route: 042
     Dates: start: 20130219, end: 20130314

REACTIONS (2)
  - Leukopenia [Recovered/Resolved]
  - Neutropenia [Recovered/Resolved]
